FAERS Safety Report 20229748 (Version 2)
Quarter: 2022Q1

REPORT INFORMATION
  Report Type: Report from Study
  Country: US (occurrence: US)
  Receive Date: 20211226
  Receipt Date: 20220114
  Transmission Date: 20220423
  Serious: No
  Sender: FDA-Public Use
  Company Number: US-SA-SAC20211221000941

PATIENT
  Age: 48 Year
  Sex: Male
  Weight: 215 kg

DRUGS (3)
  1. DUPIXENT [Suspect]
     Active Substance: DUPILUMAB
     Indication: Dermatitis atopic
     Dosage: 600 MG, 1X
     Route: 058
     Dates: start: 20210922, end: 20210922
  2. DUPIXENT [Suspect]
     Active Substance: DUPILUMAB
     Dosage: 300 MG, QOW
     Route: 058
  3. MINOXIDIL [Concomitant]
     Active Substance: MINOXIDIL

REACTIONS (4)
  - Tendon pain [Unknown]
  - Alopecia [Unknown]
  - Facial paresis [Unknown]
  - Arthralgia [Unknown]
